FAERS Safety Report 4906985-9 (Version None)
Quarter: 2006Q1

REPORT INFORMATION
  Report Type: 
  Country: None (occurrence: None)
  Receive Date: 20060207
  Receipt Date: 20060127
  Transmission Date: 20060701
  Serious: Yes (Death)
  Sender: FDA-Public Use
  Company Number: L05-USA-03935-61

PATIENT
  Age: 53 Year
  Sex: Female

DRUGS (2)
  1. THEOPHYLLINE [Suspect]
  2. TERBUTALINE [Suspect]

REACTIONS (5)
  - CONVULSION [None]
  - DIALYSIS [None]
  - HYPOKALAEMIA [None]
  - MEDICATION ERROR [None]
  - VENTRICULAR FIBRILLATION [None]
